FAERS Safety Report 4847019-4 (Version None)
Quarter: 2005Q4

REPORT INFORMATION
  Report Type: 
  Country: None (occurrence: None)
  Receive Date: 20051205
  Receipt Date: 20051121
  Transmission Date: 20060501
  Serious: Yes (Other)
  Sender: FDA-Public Use
  Company Number: 2005159579

PATIENT
  Age: 62 Year
  Sex: Male
  Weight: 108.8633 kg

DRUGS (6)
  1. LIPITOR [Suspect]
     Indication: BLOOD CHOLESTEROL INCREASED
     Dosage: 40 MG (40 MG, 1 IN 1 D), ORAL
     Route: 048
     Dates: end: 20051101
  2. GEMFIBROZIL [Suspect]
     Indication: BLOOD CHOLESTEROL INCREASED
     Dosage: 600 MG (600 MG, 1 IN 1 D)
     Dates: end: 20051101
  3. CHEMOTHERAPY NOS (CHEMOTHERAPY NOS) [Suspect]
     Indication: BLADDER CANCER
     Dates: start: 20050601
  4. HYDROCHLOROTHIAZIDE [Concomitant]
  5. ATENOLOL [Concomitant]
  6. WELLBUTRIN [Concomitant]

REACTIONS (7)
  - ABASIA [None]
  - BLADDER CANCER [None]
  - DIFFICULTY IN WALKING [None]
  - DRUG DISPENSING ERROR [None]
  - INSOMNIA [None]
  - MUSCULOSKELETAL STIFFNESS [None]
  - PAIN IN EXTREMITY [None]
